FAERS Safety Report 15297094 (Version 1)
Quarter: 2018Q4

REPORT INFORMATION
  Report Type: Spontaneous
  Country: ES (occurrence: ES)
  Receive Date: 20180820
  Receipt Date: 20180820
  Transmission Date: 20190204
  Serious: Yes (Hospitalization)
  Sender: FDA-Public Use
  Company Number: ES-FRESENIUS KABI-FK201808750

PATIENT
  Sex: Male

DRUGS (5)
  1. GENTAMICIN. [Concomitant]
     Active Substance: GENTAMICIN
     Indication: PRODUCT USED FOR UNKNOWN INDICATION
     Dosage: UNKNOWN
     Route: 065
  2. FAT EMULSION NOS [Suspect]
     Active Substance: EGG PHOSPHOLIPIDS\SAFFLOWER OIL\SOYBEAN OIL
     Indication: PRODUCT USED FOR UNKNOWN INDICATION
     Dosage: PLAN:0.4ML/H(2G OF LIPID/ KG/DAY) ?ACUTAL: 60ML(13G/KG)
     Route: 042
  3. PARENTERAL NUTRITION [Concomitant]
     Active Substance: AMINO ACIDS\DEXTROSE\ELECTROLYTES NOS
     Indication: PRODUCT USED FOR UNKNOWN INDICATION
     Dosage: UNKNOWN
     Route: 065
  4. CAFFEINE CITRATE. [Concomitant]
     Active Substance: CAFFEINE CITRATE
     Indication: PRODUCT USED FOR UNKNOWN INDICATION
     Dosage: UNKNOWN
     Route: 065
  5. AMPICILLIN [Concomitant]
     Active Substance: AMPICILLIN
     Indication: PRODUCT USED FOR UNKNOWN INDICATION
     Dosage: UNKNOWN
     Route: 065

REACTIONS (10)
  - Neonatal hyponatraemia [Recovering/Resolving]
  - Cerebrovascular disorder [Recovering/Resolving]
  - Overdose [Recovered/Resolved]
  - Hypotension [Recovering/Resolving]
  - Apnoea [Recovering/Resolving]
  - Hyperglycaemia [Recovering/Resolving]
  - Haemodynamic instability [Recovering/Resolving]
  - Lethargy [Recovering/Resolving]
  - Metabolic acidosis [Recovering/Resolving]
  - Hypertriglyceridaemia [Recovering/Resolving]
